FAERS Safety Report 6866477-7 (Version None)
Quarter: 2010Q3

REPORT INFORMATION
  Report Type: 
  Country: None (occurrence: None)
  Receive Date: 20100722
  Receipt Date: 20100713
  Transmission Date: 20110219
  Serious: Yes (Other)
  Sender: FDA-Public Use
  Company Number: US-ASTRAZENECA-2010SE32573

PATIENT
  Age: 53 Year
  Sex: Male

DRUGS (10)
  1. SYMBICORT [Suspect]
     Route: 055
     Dates: start: 20090501, end: 20090701
  2. ADVAIR DISKUS 100/50 [Suspect]
     Indication: ASTHMA
     Dosage: 500/50 MCG TWO TIMES A DAY
     Route: 055
     Dates: start: 20080301, end: 20080501
  3. ADVAIR DISKUS 100/50 [Suspect]
     Dosage: 500/50 MCG
     Route: 055
     Dates: start: 20080901, end: 20090501
  4. ADVAIR DISKUS 100/50 [Suspect]
     Dosage: 500/50 MCG
     Route: 055
     Dates: start: 20090701
  5. ADVAIR HFA-CFC FREE INHALER [Suspect]
     Indication: ASTHMA
     Dosage: 230/21 MCG
     Dates: start: 20080501, end: 20080901
  6. ZAFIRLUKAST [Concomitant]
  7. FEXOFENADINE HYDROCHLORID [Concomitant]
  8. OMEPRAZOLE [Concomitant]
  9. SALBUTAMOL SULFATE [Concomitant]
  10. FLUTICASONE PROPIONATE [Concomitant]

REACTIONS (1)
  - APHONIA [None]
